FAERS Safety Report 12892961 (Version 1)
Quarter: 2016Q4

REPORT INFORMATION
  Report Type: Spontaneous
  Country: CH (occurrence: CH)
  Receive Date: 20161028
  Receipt Date: 20161028
  Transmission Date: 20170207
  Serious: Yes (Life-Threatening, Hospitalization)
  Sender: FDA-Public Use
  Company Number: CH-PFIZER INC-2016488601

PATIENT
  Age: 53 Year
  Sex: Male
  Weight: 55 kg

DRUGS (37)
  1. DOLOPHINE [Concomitant]
     Active Substance: METHADONE HYDROCHLORIDE
     Indication: SUBSTANCE DEPENDENCE
     Dosage: 50 MG, 1X/DAY + 20 MG IF NEEDED
     Route: 048
     Dates: end: 20161001
  2. HYDROMORPHONE [Concomitant]
     Active Substance: HYDROMORPHONE
     Indication: ANALGESIC THERAPY
     Dosage: UNK
     Route: 040
     Dates: start: 20160930
  3. ZYLORIC [Concomitant]
     Active Substance: ALLOPURINOL
     Dosage: 300 MG, 1X/DAY
     Route: 048
  4. PRIMPERAN [Concomitant]
     Active Substance: METOCLOPRAMIDE HYDROCHLORIDE
     Dosage: 10 MG, AS NEEDED
     Route: 048
  5. HEPARIN [Concomitant]
     Active Substance: HEPARIN SODIUM
     Dosage: UNK
     Route: 042
  6. LASIX [Concomitant]
     Active Substance: FUROSEMIDE
     Dosage: 20 MG, DAILY
     Route: 042
     Dates: start: 20160929, end: 20160929
  7. ALKERAN [Suspect]
     Active Substance: MELPHALAN
     Indication: MANTLE CELL LYMPHOMA
     Dosage: 230 MG, UNK
     Route: 041
     Dates: start: 20160925, end: 20160925
  8. ONDANSETRON [Concomitant]
     Active Substance: ONDANSETRON
     Dosage: 8 MG, AS NEEDED
     Route: 040
  9. MORPHIN HCL SINTETICA [Concomitant]
     Dosage: 2.5 MG, AS NEEDED
     Route: 042
  10. KETALAR [Concomitant]
     Active Substance: KETAMINE HYDROCHLORIDE
     Indication: ANALGESIC THERAPY
     Dosage: UNK
     Route: 041
     Dates: start: 20161001
  11. SOLU-MEDROL [Concomitant]
     Active Substance: METHYLPREDNISOLONE SODIUM SUCCINATE
     Dosage: 125 MG, 1X/DAY
     Route: 041
  12. KONAKION [Concomitant]
     Active Substance: PHYTONADIONE
     Dosage: UNK
     Route: 040
     Dates: start: 20160929
  13. DIFLUCAN [Concomitant]
     Active Substance: FLUCONAZOLE
     Dosage: 100 MG, DAILY
     Route: 042
     Dates: start: 20160929
  14. MAGNESIUMSULFAT BICHSEL [Concomitant]
     Dosage: 4 G, DAILY ( (2X2G /D)
  15. DIAPHIN [Concomitant]
     Active Substance: DIACETYLMORPHINE HYDROCHLORIDE
     Indication: SUBSTANCE DEPENDENCE
     Dosage: 200 MG, 1X/DAY
     Route: 048
     Dates: end: 20161001
  16. NEXIUM [Concomitant]
     Active Substance: ESOMEPRAZOLE MAGNESIUM
     Dosage: 40 MG, 1X/DAY
     Route: 048
  17. NOVALGIN [Concomitant]
     Active Substance: METAMIZOLE SODIUM
     Dosage: 1 G, AS NEEDED
     Route: 041
  18. CEFEPIME [Concomitant]
     Active Substance: CEFEPIME HYDROCHLORIDE
     Dosage: UNK
     Route: 041
     Dates: start: 20160928
  19. VANCOCIN [Concomitant]
     Active Substance: VANCOMYCIN HYDROCHLORIDE
     Dosage: 1 G, 2X/DAY
     Dates: start: 20161001
  20. CLEXANE [Concomitant]
     Active Substance: ENOXAPARIN SODIUM
     Dosage: 40 MG/0.4 ML, 1X/DAY
     Route: 058
  21. CYTOSAR [Suspect]
     Active Substance: CYTARABINE
     Indication: MANTLE CELL LYMPHOMA
     Dosage: 330 MG, 1X/DAY
     Route: 041
     Dates: start: 20160921, end: 20160924
  22. PERFALGAN [Concomitant]
     Active Substance: ACETAMINOPHEN
     Indication: ANALGESIC THERAPY
     Dosage: 1 G, AS NEEDED
     Route: 041
  23. TAVEGYL [Concomitant]
     Active Substance: CLEMASTINE FUMARATE
     Dosage: 2 MG, AS NEEDED
     Route: 040
  24. KCL SINTETICA [Concomitant]
     Dosage: 60 MMOL, 1X/DAY
     Route: 042
     Dates: start: 20160928
  25. METRONIDAZOL /00012501/ [Concomitant]
     Active Substance: METRONIDAZOLE
     Dosage: 500 MG, 3X/DAY
     Route: 042
     Dates: start: 20160928
  26. TRIMIPRAMIN SANDOZ /00051803/ [Concomitant]
     Dosage: 25 MG, 3X/DAY
     Route: 048
  27. BACTRIM [Concomitant]
     Active Substance: SULFAMETHOXAZOLE\TRIMETHOPRIM
     Dosage: 1 DF, 3X/WEEK
     Route: 048
  28. OXYNORM [Concomitant]
     Active Substance: OXYCODONE HYDROCHLORIDE
     Dosage: 2 MG, UNK
     Route: 048
     Dates: start: 20160928, end: 20160929
  29. TRUXAL /00012102/ [Concomitant]
     Active Substance: CHLORPROTHIXENE
     Dosage: 50 MG, 2X/DAY
     Route: 048
  30. VIREAD [Concomitant]
     Active Substance: TENOFOVIR DISOPROXIL FUMARATE
     Indication: CHRONIC HEPATITIS B
     Dosage: 245 MG, 1X/DAY
     Route: 048
     Dates: start: 20160920
  31. METOLAZON [Concomitant]
     Active Substance: METOLAZONE
     Dosage: 5 MG, 1X/DAY
     Route: 048
     Dates: start: 20160922
  32. DIFLUCAN [Concomitant]
     Active Substance: FLUCONAZOLE
     Dosage: 200 MG, WEEKLY
     Route: 042
     Dates: end: 20160928
  33. ACYCLOVIR /00587301/ [Concomitant]
     Active Substance: ACYCLOVIR
     Dosage: 250 MG, 3X/DAY
     Route: 042
     Dates: start: 20160929
  34. ETOPOPHOS [Suspect]
     Active Substance: ETOPOSIDE PHOSPHATE
     Indication: MANTLE CELL LYMPHOMA
     Dosage: 250 MG, 1X/DAY
     Route: 041
     Dates: start: 20160921, end: 20160924
  35. VI-DE 3 [Concomitant]
     Active Substance: CHOLECALCIFEROL
     Dosage: 8 GTT, DAILY
     Route: 048
  36. BUSCOPAN [Concomitant]
     Active Substance: BUTYLSCOPOLAMINE BROMIDE
     Dosage: 10 MG, AS NEEDED
     Route: 040
  37. LASIX [Concomitant]
     Active Substance: FUROSEMIDE
     Dosage: 20 MG, DAILY
     Route: 042
     Dates: start: 20160925, end: 20160925

REACTIONS (1)
  - Venoocclusive liver disease [Unknown]

NARRATIVE: CASE EVENT DATE: 20161002
